FAERS Safety Report 18741646 (Version 3)
Quarter: 2021Q1

REPORT INFORMATION
  Report Type: Spontaneous
  Country: RU (occurrence: RU)
  Receive Date: 20210114
  Receipt Date: 20210129
  Transmission Date: 20210419
  Serious: Yes (Congenital Anomaly, Other)
  Sender: FDA-Public Use
  Company Number: RU-AMERICAN REGENT INC-2021000124

PATIENT
  Age: 0 Year
  Sex: Male
  Weight: 1.35 kg

DRUGS (3)
  1. VENOFER [Suspect]
     Active Substance: IRON SUCROSE
     Indication: PRODUCT USED FOR UNKNOWN INDICATION
     Dosage: UNK
     Route: 064
     Dates: start: 2018
  2. MALTOFER                           /00023548/ [Suspect]
     Active Substance: IRON POLYMALTOSE
     Indication: PRODUCT USED FOR UNKNOWN INDICATION
     Dosage: UNK
     Route: 064
     Dates: start: 2018
  3. FERINJECT [Suspect]
     Active Substance: FERRIC CARBOXYMALTOSE
     Indication: PRODUCT USED FOR UNKNOWN INDICATION
     Dosage: UNK
     Route: 064
     Dates: start: 2018

REACTIONS (24)
  - Congenital pneumonia [Unknown]
  - Pulmonary haemorrhage [Recovered/Resolved]
  - Multiple organ dysfunction syndrome [Unknown]
  - Postnatal growth restriction [Unknown]
  - Jaundice [Unknown]
  - Cholestasis [Unknown]
  - Perinatal brain damage [Unknown]
  - Cataract congenital [Unknown]
  - Hypoxia [Unknown]
  - Congenital cytomegalovirus infection [Unknown]
  - Hepatitis neonatal [Unknown]
  - Disseminated intravascular coagulation in newborn [Unknown]
  - Anaemia [Unknown]
  - Premature baby [Unknown]
  - Necrotising colitis [Unknown]
  - Acute kidney injury [Recovering/Resolving]
  - Psychomotor skills impaired [Unknown]
  - Strabismus [Unknown]
  - Gastric haemorrhage [Recovered/Resolved]
  - Kidney malformation [Unknown]
  - Circulatory failure neonatal [Unknown]
  - Respiratory failure [Unknown]
  - Foetal exposure during pregnancy [Unknown]
  - Neurological symptom [Unknown]

NARRATIVE: CASE EVENT DATE: 2018
